FAERS Safety Report 17529095 (Version 1)
Quarter: 2020Q1

REPORT INFORMATION
  Report Type: Spontaneous
  Country: US (occurrence: US)
  Receive Date: 20200311
  Receipt Date: 20200311
  Transmission Date: 20200409
  Serious: No
  Sender: FDA-Public Use
  Company Number: US-ROCHE-2489692

PATIENT
  Sex: Female

DRUGS (1)
  1. ENTRECTINIB [Suspect]
     Active Substance: ENTRECTINIB
     Indication: NON-SMALL CELL LUNG CANCER
     Route: 048
     Dates: start: 20190911

REACTIONS (5)
  - Dysphonia [Unknown]
  - Diarrhoea [Unknown]
  - Joint instability [Unknown]
  - Pulmonary congestion [Unknown]
  - Productive cough [Unknown]
